FAERS Safety Report 26151643 (Version 1)
Quarter: 2025Q4

REPORT INFORMATION
  Report Type: Spontaneous
  Country: EU (occurrence: EU)
  Receive Date: 20251212
  Receipt Date: 20251212
  Transmission Date: 20260118
  Serious: Yes (Death)
  Sender: MYLAN
  Company Number: None

PATIENT
  Age: 88 Year
  Sex: Male

DRUGS (4)
  1. METFORMIN [Suspect]
     Active Substance: METFORMIN HYDROCHLORIDE
     Indication: Diabetes mellitus
     Dosage: 1 GRAM, TID (3 GRAM, QD, 1 G THREE TIMES DAILY)
     Dates: end: 20211013
  2. METFORMIN [Suspect]
     Active Substance: METFORMIN HYDROCHLORIDE
     Dosage: 1 GRAM, TID (3 GRAM, QD, 1 G THREE TIMES DAILY)
     Route: 048
     Dates: end: 20211013
  3. METFORMIN [Suspect]
     Active Substance: METFORMIN HYDROCHLORIDE
     Dosage: 1 GRAM, TID (3 GRAM, QD, 1 G THREE TIMES DAILY)
     Route: 048
     Dates: end: 20211013
  4. METFORMIN [Suspect]
     Active Substance: METFORMIN HYDROCHLORIDE
     Dosage: 1 GRAM, TID (3 GRAM, QD, 1 G THREE TIMES DAILY)
     Dates: end: 20211013

REACTIONS (2)
  - Drug level above therapeutic [Fatal]
  - Lactic acidosis [Fatal]

NARRATIVE: CASE EVENT DATE: 20211013
